FAERS Safety Report 8579084-5 (Version None)
Quarter: 2012Q3

REPORT INFORMATION
  Report Type: 
  Country: None (occurrence: None)
  Receive Date: 20120801
  Receipt Date: 20120801
  Transmission Date: 20120928
  Serious: Yes (Hospitalization)
  Sender: FDA-Public Use
  Company Number: None

PATIENT
  Age: 20 Year
  Sex: Female
  Weight: 75 kg

DRUGS (6)
  1. PYRIDOSTIGMINE BROMIDE [Concomitant]
  2. PREDNISONE TAB [Concomitant]
     Dosage: ORAL 40MG DAILY
     Route: 048
  3. GAMMAGARD [Suspect]
     Indication: MUSCULAR WEAKNESS
     Dosage: 30 G DAILY X2 IV
     Route: 042
     Dates: start: 20120720, end: 20120722
  4. AZASAN [Concomitant]
     Dosage: ORAL 200 MG DAILY
     Route: 048
  5. AZATHIOPRINE SODIUM [Concomitant]
  6. MESTINON [Concomitant]
     Dosage: ORAL 60 MG TID
     Route: 048

REACTIONS (1)
  - MENINGITIS ASEPTIC [None]
